FAERS Safety Report 23716411 (Version 1)
Quarter: 2024Q2

REPORT INFORMATION
  Report Type: Spontaneous
  Country: US (occurrence: US)
  Receive Date: 20240408
  Receipt Date: 20240408
  Transmission Date: 20240715
  Serious: No
  Sender: FDA-Public Use
  Company Number: US-UCBSA-2024000313

PATIENT
  Sex: Male

DRUGS (1)
  1. BRIVIACT [Suspect]
     Active Substance: BRIVARACETAM
     Indication: Craniocerebral injury
     Dosage: UNK, 2X/DAY (BID)

REACTIONS (2)
  - Product use in unapproved indication [Unknown]
  - Insurance issue [Unknown]
